FAERS Safety Report 14985958 (Version 1)
Quarter: 2018Q2

REPORT INFORMATION
  Report Type: Spontaneous
  Country: CN (occurrence: CN)
  Receive Date: 20180607
  Receipt Date: 20180607
  Transmission Date: 20180711
  Serious: Yes (Hospitalization)
  Sender: FDA-Public Use
  Company Number: CN-MYLANLABS-2018M1038211

PATIENT
  Age: 57 Year
  Sex: Female

DRUGS (5)
  1. CAPECITABINE. [Suspect]
     Active Substance: CAPECITABINE
     Indication: COLON CANCER
     Dosage: PRESCRIBED FOR DAYS 1-14 AS PART OF CAPEOX CHEMOTHERAPY
     Route: 048
  2. PANTOPRAZOLE [Concomitant]
     Active Substance: PANTOPRAZOLE
     Indication: CHEMOTHERAPY
     Route: 065
  3. OXALIPLATIN. [Concomitant]
     Active Substance: OXALIPLATIN
     Indication: COLON CANCER
     Dosage: ON DAY 1
     Route: 042
  4. METOCLOPRAMIDE. [Concomitant]
     Active Substance: METOCLOPRAMIDE
     Indication: CHEMOTHERAPY
     Route: 065
  5. PALONOSETRON. [Concomitant]
     Active Substance: PALONOSETRON HYDROCHLORIDE
     Indication: CHEMOTHERAPY
     Route: 065

REACTIONS (12)
  - Dizziness [Recovered/Resolved]
  - Speech disorder [Recovering/Resolving]
  - Sluggishness [Recovered/Resolved]
  - Hyperammonaemia [Recovered/Resolved]
  - Vomiting [Recovering/Resolving]
  - Taciturnity [Recovered/Resolved]
  - Confusional state [Recovered/Resolved]
  - Nausea [Recovering/Resolving]
  - Restlessness [Recovered/Resolved]
  - Sleep disorder [Recovered/Resolved]
  - Lethargy [Recovered/Resolved]
  - Indifference [Recovering/Resolving]
